FAERS Safety Report 16021676 (Version 1)
Quarter: 2019Q1

REPORT INFORMATION
  Report Type: Report from Study
  Country: ES (occurrence: ES)
  Receive Date: 20190301
  Receipt Date: 20190301
  Transmission Date: 20190418
  Serious: Yes (Hospitalization)
  Sender: FDA-Public Use
  Company Number: ES-ACCORD-109972

PATIENT
  Age: 85 Year
  Sex: Male

DRUGS (4)
  1. AMLODIPINE/VALSARTAN [Suspect]
     Active Substance: AMLODIPINE\VALSARTAN
     Indication: HYPERTENSION
     Dosage: 160/5 MG EVERY 24 HOURS
     Route: 048
     Dates: start: 20170627, end: 20170830
  2. TARDYFERON [Concomitant]
     Active Substance: FERROUS SULFATE
     Indication: ANAEMIA
     Dosage: STRENGTH : 80 MG, 1 TABLET EVERY 24 HOURS
     Route: 048
     Dates: start: 20170627
  3. AMLODIPINE [Suspect]
     Active Substance: AMLODIPINE BESYLATE
     Indication: HYPERTENSION
     Dosage: 5 MG EVERY 24 HOURS
     Route: 048
     Dates: start: 20141201, end: 20170830
  4. ESIDREX [Suspect]
     Active Substance: HYDROCHLOROTHIAZIDE
     Indication: HYPERTENSION
     Dosage: STRENGTH : 25 MG, 1/2 TABLET IN THE MORNING
     Route: 048
     Dates: start: 20091203, end: 20170830

REACTIONS (1)
  - Acute kidney injury [Not Recovered/Not Resolved]

NARRATIVE: CASE EVENT DATE: 20170830
